FAERS Safety Report 12564005 (Version 1)
Quarter: 2016Q3

REPORT INFORMATION
  Report Type: Spontaneous
  Country: US (occurrence: None)
  Receive Date: 20160715
  Receipt Date: 20160715
  Transmission Date: 20161109
  Serious: Yes (Life-Threatening, Hospitalization)
  Sender: FDA-Public Use
  Company Number: None

PATIENT
  Age: 55 Year
  Sex: Female
  Weight: 87.54 kg

DRUGS (6)
  1. SAVELLA [Concomitant]
     Active Substance: MILNACIPRAN HYDROCHLORIDE
  2. VITAMIN D [Concomitant]
     Active Substance: CHOLECALCIFEROL
  3. CALCIUM [Concomitant]
     Active Substance: CALCIUM
  4. PRIALT [Suspect]
     Active Substance: ZICONOTIDE ACETATE
     Indication: PAIN MANAGEMENT
     Dates: start: 20140701, end: 20160714
  5. PROVIGIL [Concomitant]
     Active Substance: MODAFINIL
  6. TYSBERI [Concomitant]

REACTIONS (2)
  - Legal problem [None]
  - Psychotic disorder [None]

NARRATIVE: CASE EVENT DATE: 20160614
